FAERS Safety Report 6352103-2 (Version None)
Quarter: 2009Q3

REPORT INFORMATION
  Report Type: 
  Country: None (occurrence: None)
  Receive Date: 20090912
  Receipt Date: 20090622
  Transmission Date: 20100115
  Serious: No
  Sender: FDA-Public Use
  Company Number: US-ABBOTT-07P-163-0431323-00

PATIENT
  Sex: Female
  Weight: 181 kg

DRUGS (16)
  1. HUMIRA [Suspect]
     Indication: RHEUMATOID ARTHRITIS
     Route: 058
     Dates: start: 20070801
  2. DYAZIDE [Concomitant]
     Indication: HYPERTENSION
     Route: 048
  3. AMLODIPINE [Concomitant]
     Indication: HYPERTENSION
     Route: 048
  4. DULOXETINE HYDROCHLORIDE [Concomitant]
     Indication: DEPRESSION
     Route: 048
  5. FUROSEMIDE [Concomitant]
     Indication: OEDEMA PERIPHERAL
     Route: 048
  6. FUROSEMIDE [Concomitant]
  7. POTASSIUM REPLACEMENT [Concomitant]
     Indication: MINERAL SUPPLEMENTATION
     Route: 048
  8. INEGY [Concomitant]
     Indication: BLOOD CHOLESTEROL INCREASED
     Route: 048
  9. TRAZODONE [Concomitant]
     Indication: DEPRESSION
     Route: 048
  10. FOLIC ACID [Concomitant]
     Indication: VITAMIN SUPPLEMENTATION
     Route: 048
  11. METHOTREXATE [Concomitant]
     Indication: RHEUMATOID ARTHRITIS
     Route: 048
  12. PREDNISONE [Concomitant]
     Indication: RHEUMATOID ARTHRITIS
     Route: 048
  13. ALBUTEROL [Concomitant]
     Indication: CHRONIC OBSTRUCTIVE PULMONARY DISEASE
     Route: 055
  14. ESOMEPRAZOLE MAGNESIUM [Concomitant]
     Indication: GASTROOESOPHAGEAL REFLUX DISEASE
     Route: 048
  15. LOMETROL [Concomitant]
     Indication: BIPOLAR DISORDER
     Route: 048
  16. LEVOPRES [Concomitant]
     Indication: HYPERTENSION
     Route: 048

REACTIONS (3)
  - INCORRECT DOSE ADMINISTERED [None]
  - INJECTION SITE EXTRAVASATION [None]
  - INJECTION SITE IRRITATION [None]
